FAERS Safety Report 8431743-0 (Version None)
Quarter: 2012Q2

REPORT INFORMATION
  Report Type: 
  Country: None (occurrence: None)
  Receive Date: 20120607
  Receipt Date: 20120607
  Transmission Date: 20120825
  Serious: Yes (Death)
  Sender: FDA-Public Use
  Company Number: None

PATIENT
  Age: 80 Year
  Sex: Male
  Weight: 86.7 kg

DRUGS (1)
  1. WARFARIN SODIUM [Suspect]
     Indication: ATRIAL FIBRILLATION
     Dosage: 1 TAB UD PO
     Route: 048
     Dates: start: 20070313, end: 20120530

REACTIONS (9)
  - APHASIA [None]
  - SUBARACHNOID HAEMORRHAGE [None]
  - TREATMENT NONCOMPLIANCE [None]
  - HAEMORRHAGE INTRACRANIAL [None]
  - SUBDURAL HAEMORRHAGE [None]
  - FALL [None]
  - HEMIPARESIS [None]
  - CARDIAC ARREST [None]
  - ATRIAL FIBRILLATION [None]
